FAERS Safety Report 22038245 (Version 1)
Quarter: 2023Q1

REPORT INFORMATION
  Report Type: Report from Study
  Country: BE (occurrence: BE)
  Receive Date: 20230227
  Receipt Date: 20230227
  Transmission Date: 20230418
  Serious: Yes (Other)
  Sender: FDA-Public Use
  Company Number: BE-SUN PHARMACEUTICAL INDUSTRIES LTD-2023RR-379724

PATIENT
  Age: 66 Year
  Sex: Female

DRUGS (4)
  1. BORTEZOMIB [Suspect]
     Active Substance: BORTEZOMIB
     Indication: Plasma cell myeloma
     Dosage: THREE CYCLES
     Route: 065
  2. LENALIDOMIDE [Suspect]
     Active Substance: LENALIDOMIDE
     Indication: Plasma cell myeloma
     Dosage: THREE CYCLES
     Route: 065
  3. LENALIDOMIDE [Suspect]
     Active Substance: LENALIDOMIDE
     Dosage: 5 MILLIGRAM, UNK
     Route: 065
  4. DEXAMETHASONE [Suspect]
     Active Substance: DEXAMETHASONE
     Indication: Plasma cell myeloma
     Dosage: THREE CYCLES
     Route: 065

REACTIONS (3)
  - Neurological examination abnormal [Unknown]
  - Nephrotic syndrome [Unknown]
  - Therapeutic product effect incomplete [Unknown]
